FAERS Safety Report 7541640-0 (Version None)
Quarter: 2011Q2

REPORT INFORMATION
  Report Type: 
  Country: None (occurrence: None)
  Receive Date: 20110613
  Receipt Date: 20110604
  Transmission Date: 20111010
  Serious: No
  Sender: FDA-Public Use
  Company Number: US-ROXANE LABORATORIES, INC.-2011-RO-00786RO

PATIENT
  Sex: Female
  Weight: 67 kg

DRUGS (3)
  1. METHOTREXATE [Concomitant]
     Indication: RHEUMATOID ARTHRITIS
     Route: 048
  2. FLUTICASONE PROPIONATE [Suspect]
     Indication: SEASONAL ALLERGY
     Route: 045
     Dates: start: 20110401, end: 20110501
  3. PREMPRO [Concomitant]
     Indication: HOT FLUSH

REACTIONS (1)
  - NASAL DISCOMFORT [None]
